FAERS Safety Report 14436210 (Version 9)
Quarter: 2020Q3

REPORT INFORMATION
  Report Type: Report from Study
  Country: DE (occurrence: DE)
  Receive Date: 20180125
  Receipt Date: 20180928
  Transmission Date: 20201105
  Serious: Yes (Hospitalization)
  Sender: FDA-Public Use
  Company Number: DE-ROCHE-2047834

PATIENT
  Age: 68 Year
  Sex: Male
  Weight: 78 kg

DRUGS (122)
  1. PREDNITOP (GERMANY) [Concomitant]
     Route: 065
     Dates: start: 20171102, end: 20180119
  2. PREDNISOLON [Concomitant]
     Active Substance: PREDNISOLONE
     Route: 065
     Dates: start: 20180123, end: 20180125
  3. PREDNISOLON [Concomitant]
     Active Substance: PREDNISOLONE
     Route: 065
     Dates: start: 20180309, end: 20180315
  4. CETIRIZIN [Concomitant]
     Active Substance: CETIRIZINE HYDROCHLORIDE
     Route: 065
     Dates: start: 20171107
  5. STEROFUNDIN [Concomitant]
     Active Substance: CALCIUM CHLORIDE\MAGNESIUM CHLORIDE\POTASSIUM CHLORIDE\SODIUM ACETATE\SODIUM CHLORIDE
     Route: 065
     Dates: start: 20171129, end: 20171129
  6. INFLIXIMAB [Concomitant]
     Active Substance: INFLIXIMAB
     Route: 042
     Dates: start: 20180130, end: 20180130
  7. INFLIXIMAB [Concomitant]
     Active Substance: INFLIXIMAB
     Route: 065
     Dates: start: 20180327, end: 20180327
  8. AMOXICILLIN. [Concomitant]
     Active Substance: AMOXICILLIN
     Dosage: 875/125MG
     Route: 065
     Dates: start: 20180102
  9. PROGRAF [Concomitant]
     Active Substance: TACROLIMUS
     Indication: DERMATITIS
     Route: 065
     Dates: start: 20180126
  10. PROGRAF [Concomitant]
     Active Substance: TACROLIMUS
     Indication: STOMATITIS
  11. DAIVONEX [Concomitant]
     Active Substance: CALCIPOTRIENE
     Indication: DERMATITIS
     Route: 065
     Dates: start: 20180127
  12. DAIVOBET [Concomitant]
     Active Substance: BETAMETHASONE DIPROPIONATE\CALCIPOTRIENE
     Indication: DERMATITIS
     Route: 065
     Dates: start: 20180127
  13. OTRIVEN NASAL SPRAY [Concomitant]
     Route: 065
     Dates: start: 20180214, end: 20180223
  14. VITAMIN A [Concomitant]
     Active Substance: VITAMIN A
     Route: 065
     Dates: start: 20180214
  15. LAXANS (BISACODYL) [Concomitant]
     Active Substance: BISACODYL
     Indication: CONSTIPATION
     Route: 065
     Dates: start: 20180128, end: 20180128
  16. ATEZOLIZUMAB. [Suspect]
     Active Substance: ATEZOLIZUMAB
     Indication: B-CELL LYMPHOMA
     Dosage: MOST RECENT DOSE 1200 MG OF ATEZOLIZUMAB PRIOR TO AE ONSET: 18/OCT/2017
     Route: 042
     Dates: start: 20170906
  17. PREDNISOLON [Concomitant]
     Active Substance: PREDNISOLONE
     Route: 065
     Dates: start: 20171211, end: 20171217
  18. PREDNISOLON [Concomitant]
     Active Substance: PREDNISOLONE
     Route: 065
     Dates: start: 20171218, end: 20171224
  19. PREDNISOLON [Concomitant]
     Active Substance: PREDNISOLONE
     Route: 065
     Dates: start: 20171225, end: 20171231
  20. PREDNISOLON [Concomitant]
     Active Substance: PREDNISOLONE
     Route: 065
     Dates: start: 20180101, end: 20180103
  21. PERFALGAN [Concomitant]
     Active Substance: ACETAMINOPHEN
     Route: 042
     Dates: start: 20180118
  22. CLEXANE [Concomitant]
     Active Substance: ENOXAPARIN SODIUM
     Indication: THROMBOSIS PROPHYLAXIS
     Route: 058
     Dates: start: 20171129, end: 20171219
  23. FILGRASTIM [Concomitant]
     Active Substance: FILGRASTIM
     Dosage: 30 MIO E/ 0.5ML
     Route: 065
     Dates: start: 20171130, end: 20171201
  24. NACL .9% [Concomitant]
     Route: 065
     Dates: start: 20180227
  25. LINEZOLID. [Concomitant]
     Active Substance: LINEZOLID
     Route: 042
     Dates: start: 20171201, end: 20171210
  26. NEUPOGEN [Concomitant]
     Active Substance: FILGRASTIM
     Route: 065
     Dates: start: 20180122, end: 20180131
  27. PLATELETS [Concomitant]
     Active Substance: HUMAN PLATELET, ALLOGENIC
     Route: 042
     Dates: start: 20180201, end: 20180201
  28. PLATELETS [Concomitant]
     Active Substance: HUMAN PLATELET, ALLOGENIC
     Route: 065
     Dates: start: 20180213, end: 20180213
  29. FLOXAL [Concomitant]
     Active Substance: OFLOXACIN
     Route: 065
     Dates: start: 20180128
  30. LASIX [Concomitant]
     Active Substance: FUROSEMIDE
     Indication: OEDEMA PERIPHERAL
     Route: 042
     Dates: start: 20180128
  31. VFEND [Concomitant]
     Active Substance: VORICONAZOLE
     Indication: BRONCHOPULMONARY ASPERGILLOSIS
     Route: 065
     Dates: start: 20180122, end: 20180528
  32. MERONEM [Concomitant]
     Active Substance: MEROPENEM
     Route: 042
     Dates: start: 20180320
  33. CICLOPIROX. [Concomitant]
     Active Substance: CICLOPIROX
     Route: 065
     Dates: start: 20180223
  34. KALINOR (POTASSIUM BICARBONATE\POTASSIUM CITRATE) [Concomitant]
     Active Substance: POTASSIUM BICARBONATE\POTASSIUM CITRATE
     Indication: HYPOKALAEMIA
     Route: 065
     Dates: start: 20180101, end: 20180103
  35. KALINOR (POTASSIUM BICARBONATE\POTASSIUM CITRATE) [Concomitant]
     Active Substance: POTASSIUM BICARBONATE\POTASSIUM CITRATE
     Route: 065
     Dates: start: 20180117
  36. BIFITERAL [Concomitant]
     Active Substance: LACTULOSE
     Indication: CONSTIPATION
     Route: 065
     Dates: start: 20180128, end: 20180128
  37. PENTACARINAT [Concomitant]
     Active Substance: PENTAMIDINE ISETHIONATE
     Indication: PROPHYLAXIS
     Route: 065
     Dates: start: 20170920
  38. INFLANEFRAN [Concomitant]
     Active Substance: PREDNISOLONE ACETATE
     Indication: SCLERITIS
     Dosage: STRENGTH: 10 MG/ML
     Route: 065
     Dates: start: 20171030, end: 20171206
  39. ACICLOVIR [Concomitant]
     Active Substance: ACYCLOVIR
     Indication: PROPHYLAXIS
     Route: 065
     Dates: start: 20171107, end: 20180509
  40. PREDNISOLON [Concomitant]
     Active Substance: PREDNISOLONE
     Route: 065
     Dates: start: 20180224, end: 20180302
  41. CLEXANE [Concomitant]
     Active Substance: ENOXAPARIN SODIUM
     Route: 065
     Dates: start: 20171221, end: 20171226
  42. NACL .9% [Concomitant]
     Route: 065
     Dates: start: 20180117, end: 20180122
  43. INFLIXIMAB [Concomitant]
     Active Substance: INFLIXIMAB
     Route: 042
     Dates: start: 20171205, end: 20171205
  44. FLUCONAZOL [Concomitant]
     Active Substance: FLUCONAZOLE
     Route: 065
     Dates: start: 20171228, end: 20180110
  45. NEUPOGEN [Concomitant]
     Active Substance: FILGRASTIM
     Dosage: 30 MIO.E S.C.
     Route: 065
     Dates: start: 20180212
  46. SMOFKABIVEN [Concomitant]
     Active Substance: AMINO ACIDS\DEXTROSE\ELECTROLYTES NOS\SOYBEAN OIL
     Indication: WEIGHT DECREASED
     Dosage: 800KCAL
     Route: 065
     Dates: start: 20171206, end: 20171209
  47. SMOFKABIVEN [Concomitant]
     Active Substance: AMINO ACIDS\DEXTROSE\ELECTROLYTES NOS\SOYBEAN OIL
     Route: 042
     Dates: start: 20180205, end: 20180206
  48. DEXAPOS [Concomitant]
     Route: 047
     Dates: start: 20180119
  49. LANTUS [Concomitant]
     Active Substance: INSULIN GLARGINE
     Route: 058
     Dates: start: 20180214
  50. SMOFKABIVEN PERIPHERAL [Concomitant]
     Route: 065
     Dates: start: 20180207, end: 20180213
  51. OPTIVE [Concomitant]
     Active Substance: CARBOXYMETHYLCELLULOSE SODIUM\GLYCERIN
     Route: 065
     Dates: start: 20171107
  52. VIGANTOLETTEN [Concomitant]
     Active Substance: CHOLECALCIFEROL
     Dosage: 1000
     Route: 065
     Dates: start: 20171107, end: 20180528
  53. PREDNISOLON [Concomitant]
     Active Substance: PREDNISOLONE
     Indication: DERMATITIS
     Route: 065
     Dates: start: 20171116, end: 20171122
  54. STEROFUNDIN [Concomitant]
     Active Substance: CALCIUM CHLORIDE\MAGNESIUM CHLORIDE\POTASSIUM CHLORIDE\SODIUM ACETATE\SODIUM CHLORIDE
     Route: 065
     Dates: start: 20180119, end: 20180121
  55. STEROFUNDIN [Concomitant]
     Active Substance: CALCIUM CHLORIDE\MAGNESIUM CHLORIDE\POTASSIUM CHLORIDE\SODIUM ACETATE\SODIUM CHLORIDE
     Route: 065
     Dates: start: 20180122, end: 20180412
  56. TAZOBAC [Concomitant]
     Active Substance: PIPERACILLIN SODIUM\TAZOBACTAM SODIUM
     Dosage: 3X4.5G
     Route: 065
     Dates: start: 20171227, end: 20180102
  57. INFLIXIMAB [Concomitant]
     Active Substance: INFLIXIMAB
     Route: 065
     Dates: start: 20180103, end: 20180103
  58. EFFLUMIDEX [Concomitant]
     Route: 065
     Dates: start: 20171211, end: 20180119
  59. AMOXICILLIN. [Concomitant]
     Active Substance: AMOXICILLIN
     Dosage: 875/125MG
     Route: 065
     Dates: start: 20180102, end: 20180115
  60. CANDIO HERMAL [Concomitant]
     Indication: ORAL FUNGAL INFECTION
     Route: 065
     Dates: start: 20180119
  61. PLATELETS [Concomitant]
     Active Substance: HUMAN PLATELET, ALLOGENIC
     Route: 065
     Dates: start: 20180124, end: 20180124
  62. ACTRAPID [Concomitant]
     Active Substance: INSULIN HUMAN
     Indication: HYPERGLYCAEMIA
     Route: 058
     Dates: start: 20180205
  63. POTASSIUM CHLORIDE. [Concomitant]
     Active Substance: POTASSIUM CHLORIDE
     Route: 065
     Dates: start: 20180206
  64. MERONEM [Concomitant]
     Active Substance: MEROPENEM
     Route: 042
     Dates: start: 20180303, end: 20180316
  65. SMOFKABIVEN PERIPHERAL [Concomitant]
     Route: 065
     Dates: start: 20180214
  66. OBINUTUZUMAB. [Suspect]
     Active Substance: OBINUTUZUMAB
     Indication: B-CELL LYMPHOMA
     Dosage: A FLAT DOSE OF 1000 MG ON DAYS 1, 8, AND 15 OF CYCLE 1, AND ON DAY 1 OF CYCLES 2?6, GIVEN IN 21?DAY
     Route: 042
     Dates: start: 20170816
  67. GLANDOMED [Concomitant]
     Route: 065
     Dates: start: 20171031
  68. PREDNISOLON [Concomitant]
     Active Substance: PREDNISOLONE
     Route: 065
     Dates: start: 20171123, end: 20171129
  69. PREDNISOLON [Concomitant]
     Active Substance: PREDNISOLONE
     Route: 065
     Dates: start: 20180115, end: 20180121
  70. PREDNISOLON [Concomitant]
     Active Substance: PREDNISOLONE
     Route: 065
     Dates: start: 20180126, end: 20180203
  71. PREDNISOLON [Concomitant]
     Active Substance: PREDNISOLONE
     Route: 065
     Dates: start: 20180316, end: 20180322
  72. PREDNISOLON [Concomitant]
     Active Substance: PREDNISOLONE
     Route: 065
     Dates: start: 20180330
  73. TOREM [Concomitant]
     Active Substance: TORSEMIDE
     Route: 065
     Dates: start: 20171130, end: 20180119
  74. STEROFUNDIN [Concomitant]
     Active Substance: CALCIUM CHLORIDE\MAGNESIUM CHLORIDE\POTASSIUM CHLORIDE\SODIUM ACETATE\SODIUM CHLORIDE
     Route: 065
     Dates: start: 20171201, end: 20171211
  75. AMPHO MORONAL [Concomitant]
     Active Substance: AMPHOTERICIN B
     Indication: PROPHYLAXIS
     Route: 065
     Dates: start: 20171202, end: 20180125
  76. NACL .9% [Concomitant]
     Route: 065
     Dates: start: 20171228, end: 20180103
  77. NACL .9% [Concomitant]
     Route: 065
     Dates: start: 20180130
  78. NEUPOGEN [Concomitant]
     Active Substance: FILGRASTIM
     Route: 065
     Dates: start: 20180205, end: 20180205
  79. BISACODYL. [Concomitant]
     Active Substance: BISACODYL
     Route: 065
     Dates: start: 20180128, end: 20180128
  80. MERONEM [Concomitant]
     Active Substance: MEROPENEM
     Route: 042
     Dates: start: 20180213
  81. ALLOPURINOL. [Concomitant]
     Active Substance: ALLOPURINOL
     Indication: PROPHYLAXIS
     Route: 065
     Dates: start: 20170816, end: 20171201
  82. BEROTEC [Concomitant]
     Active Substance: FENOTEROL HYDROBROMIDE
     Indication: PROPHYLAXIS
     Route: 065
     Dates: start: 20170920
  83. PANTOZOL [Concomitant]
     Active Substance: PANTOPRAZOLE SODIUM
     Indication: PROPHYLAXIS
     Route: 065
     Dates: start: 20171018
  84. BEPANTHEN EYE OINTMENT (GERMANY) [Concomitant]
     Route: 065
     Dates: start: 20171107, end: 20180124
  85. PREDNISOLON [Concomitant]
     Active Substance: PREDNISOLONE
     Route: 065
     Dates: start: 20180204, end: 20180209
  86. TOREM [Concomitant]
     Active Substance: TORSEMIDE
     Indication: RENAL FAILURE
     Route: 065
     Dates: start: 20171115, end: 20171130
  87. TOREM [Concomitant]
     Active Substance: TORSEMIDE
     Route: 065
     Dates: start: 20180201, end: 20180206
  88. PREDNISOLUT [Concomitant]
     Active Substance: PREDNISOLONE
     Route: 065
     Dates: start: 20171129, end: 20171129
  89. PREDNISOLUT [Concomitant]
     Active Substance: PREDNISOLONE
     Route: 042
     Dates: start: 20171130, end: 20171211
  90. TAZOBAC [Concomitant]
     Active Substance: PIPERACILLIN SODIUM\TAZOBACTAM SODIUM
     Indication: PYREXIA
     Route: 065
     Dates: start: 20171129, end: 20171211
  91. INFLIXIMAB [Concomitant]
     Active Substance: INFLIXIMAB
     Route: 065
     Dates: start: 20171219, end: 20171219
  92. CLOBETASOLPROPIONAT [Concomitant]
     Route: 065
     Dates: start: 20171201, end: 20180103
  93. AMOXICLAV [Concomitant]
     Active Substance: AMOXICILLIN\CLAVULANATE POTASSIUM
     Dosage: 875/125MG
     Route: 065
     Dates: start: 20171210, end: 20171214
  94. DEXPANTHENOL. [Concomitant]
     Active Substance: DEXPANTHENOL
     Route: 065
     Dates: start: 20171103
  95. PLATELETS [Concomitant]
     Active Substance: HUMAN PLATELET, ALLOGENIC
     Indication: THROMBOCYTOPENIA
     Route: 065
     Dates: start: 20180122, end: 20180122
  96. INSUMAN (GERMANY) [Concomitant]
     Indication: HYPERGLYCAEMIA
     Route: 058
     Dates: start: 20180207
  97. SQUAMASOL [Concomitant]
     Route: 065
     Dates: start: 20180214
  98. BETNESOL (GERMANY) [Concomitant]
     Route: 065
     Dates: start: 20171103
  99. PREDNISOLON [Concomitant]
     Active Substance: PREDNISOLONE
     Route: 065
     Dates: start: 20180104, end: 20180114
  100. PREDNISOLON [Concomitant]
     Active Substance: PREDNISOLONE
     Route: 065
     Dates: start: 20180217, end: 20180223
  101. PREDNISOLON [Concomitant]
     Active Substance: PREDNISOLONE
     Route: 065
     Dates: start: 20180303, end: 20180308
  102. PREDNISOLON [Concomitant]
     Active Substance: PREDNISOLONE
     Route: 065
     Dates: start: 20180323, end: 20180329
  103. CLEXANE [Concomitant]
     Active Substance: ENOXAPARIN SODIUM
     Route: 065
     Dates: start: 20171227, end: 20180126
  104. CIPROFLOXACIN. [Concomitant]
     Active Substance: CIPROFLOXACIN
     Route: 065
     Dates: start: 20171210, end: 20171214
  105. NEUPOGEN [Concomitant]
     Active Substance: FILGRASTIM
     Indication: LEUKOPENIA
     Dosage: 30 MIO.E
     Route: 065
     Dates: start: 20171227, end: 20171228
  106. SMOFKABIVEN [Concomitant]
     Active Substance: AMINO ACIDS\DEXTROSE\ELECTROLYTES NOS\SOYBEAN OIL
     Route: 065
     Dates: start: 20180207, end: 20180207
  107. KIOVIG [Concomitant]
     Active Substance: HUMAN IMMUNOGLOBULIN G
     Indication: BLOOD IMMUNOGLOBULIN G DECREASED
     Route: 042
     Dates: start: 20180119, end: 20180119
  108. CICLOSPORIN [Concomitant]
     Active Substance: CYCLOSPORINE
     Route: 065
     Dates: start: 20180214
  109. POLATUZUMAB VEDOTIN. [Suspect]
     Active Substance: POLATUZUMAB VEDOTIN
     Indication: B-CELL LYMPHOMA
     Dosage: MOST RECENT DOSE 169.2 MG OF POLATUZUMAB VEDOTIN PRIOR TO AE ONSET: 08/NOV/2017?EITHER 1.4 MG/KILOGR
     Route: 042
     Dates: start: 20170816
  110. PREDNISOLON [Concomitant]
     Active Substance: PREDNISOLONE
     Route: 065
     Dates: start: 20180122, end: 20180122
  111. PERFALGAN [Concomitant]
     Active Substance: ACETAMINOPHEN
     Indication: PYREXIA
     Route: 042
     Dates: start: 20171129, end: 20171129
  112. TAZOBAC [Concomitant]
     Active Substance: PIPERACILLIN SODIUM\TAZOBACTAM SODIUM
     Route: 065
     Dates: start: 20180117
  113. TAZOBAC [Concomitant]
     Active Substance: PIPERACILLIN SODIUM\TAZOBACTAM SODIUM
     Dosage: 3X4.5G
     Route: 042
     Dates: start: 20180117, end: 20180208
  114. PARACETAMOL [Concomitant]
     Active Substance: ACETAMINOPHEN
     Indication: PYREXIA
     Route: 065
     Dates: start: 20171201, end: 20171201
  115. FILGRASTIM [Concomitant]
     Active Substance: FILGRASTIM
     Dosage: 30 MIO E/ 0.5ML
     Route: 065
     Dates: start: 20171205, end: 20171207
  116. NACL .9% [Concomitant]
     Indication: VIRAL INFECTION
     Route: 065
     Dates: start: 20171130, end: 20171130
  117. INFLIXIMAB [Concomitant]
     Active Substance: INFLIXIMAB
     Route: 065
     Dates: start: 20180221, end: 20180221
  118. INFLIXIMAB [Concomitant]
     Active Substance: INFLIXIMAB
     Route: 065
     Dates: start: 20180312
  119. FLUCONAZOL [Concomitant]
     Active Substance: FLUCONAZOLE
     Route: 065
     Dates: start: 20171221, end: 20171225
  120. PLATELETS [Concomitant]
     Active Substance: HUMAN PLATELET, ALLOGENIC
     Route: 065
     Dates: start: 20180130, end: 20180130
  121. KALIUMCHLORID [Concomitant]
     Active Substance: POTASSIUM CHLORIDE
     Indication: HYPOKALAEMIA
     Dosage: 60MVAL
     Route: 042
     Dates: start: 20180124, end: 20180128
  122. KINERET [Concomitant]
     Active Substance: ANAKINRA
     Route: 058

REACTIONS (2)
  - Erysipelas [Recovered/Resolved]
  - C-reactive protein increased [Recovered/Resolved]

NARRATIVE: CASE EVENT DATE: 20171221
